FAERS Safety Report 11451983 (Version 1)
Quarter: 2015Q3

REPORT INFORMATION
  Report Type: Spontaneous
  Country: US (occurrence: US)
  Receive Date: 20150903
  Receipt Date: 20150903
  Transmission Date: 20151125
  Serious: Yes (Hospitalization)
  Sender: FDA-Public Use
  Company Number: US-ROCHE-1081541

PATIENT
  Sex: Female

DRUGS (3)
  1. PEGASYS [Suspect]
     Active Substance: PEGINTERFERON ALFA-2A
     Indication: CHRONIC HEPATITIS C
     Dosage: PRO CLICK AUTOINJECTOR
     Route: 058
     Dates: start: 20120616
  2. RIBAVIRIN. [Suspect]
     Active Substance: RIBAVIRIN
     Indication: CHRONIC HEPATITIS C
     Dosage: ZYDUA PHARMACEUTICALS BRAND
     Route: 048
     Dates: start: 20120616
  3. TELAPREVIR [Suspect]
     Active Substance: TELAPREVIR
     Indication: CHRONIC HEPATITIS C
     Dosage: INCIVEK VERTEX PHARMACEUTICALS
     Route: 065
     Dates: start: 20120616

REACTIONS (8)
  - Skin discolouration [Unknown]
  - Chest discomfort [Unknown]
  - Anxiety [Unknown]
  - Dyspnoea [Unknown]
  - Decreased appetite [Unknown]
  - Logorrhoea [Unknown]
  - Flight of ideas [Unknown]
  - Insomnia [Unknown]
